FAERS Safety Report 17572770 (Version 1)
Quarter: 2020Q1

REPORT INFORMATION
  Report Type: Report from Study
  Country: None (occurrence: BE)
  Receive Date: 20200323
  Receipt Date: 20200323
  Transmission Date: 20200409
  Serious: Yes (Other)
  Sender: FDA-Public Use
  Company Number: BE-ABBVIE-19K-013-2973190-00

PATIENT
  Sex: Male

DRUGS (9)
  1. STALEVO [Concomitant]
     Active Substance: CARBIDOPA\ENTACAPONE\LEVODOPA
     Dosage: FORM STRENGTH: 100MG/25MG/200MG; AS RESCUE MEDICATION
  2. MIRAPEXIN [Concomitant]
     Active Substance: PRAMIPEXOLE
     Indication: PARKINSON^S DISEASE
     Route: 048
  3. CRESTOR [Concomitant]
     Active Substance: ROSUVASTATIN CALCIUM
     Indication: PRODUCT USED FOR UNKNOWN INDICATION
     Route: 065
  4. DUODOPA [Suspect]
     Active Substance: CARBIDOPA\LEVODOPA
     Dosage: DOSES CONTINUOUSLY MONITORED AND ADAPTED
     Route: 050
     Dates: start: 20160607, end: 20190118
  5. DUODOPA [Suspect]
     Active Substance: CARBIDOPA\LEVODOPA
     Dosage: MD= 3ML, CD= 4.2ML/HR DURING 16HRS, ED= 2ML, ND= 2.2ML/HR DURING 8HRS
     Route: 050
     Dates: start: 20190118
  6. TOLTERODINE TEVA [Concomitant]
     Active Substance: TOLTERODINE TARTRATE
     Indication: PRODUCT USED FOR UNKNOWN INDICATION
  7. DUODOPA [Suspect]
     Active Substance: CARBIDOPA\LEVODOPA
     Indication: PARKINSON^S DISEASE
     Dosage: MD= 11ML, CD= 1.6ML/HR DURING 16HRS, ED= 1.5ML, ND= 1.0ML/HR DURING 8HRS
     Route: 050
     Dates: start: 20160606, end: 20160607
  8. STALEVO [Concomitant]
     Active Substance: CARBIDOPA\ENTACAPONE\LEVODOPA
     Indication: PARKINSON^S DISEASE
     Dosage: FORM STRENGTH: 100MG/25MG/200MG; UNIT DOSE: 1 TABLET
     Route: 048
  9. MIRAPEXIN [Concomitant]
     Active Substance: PRAMIPEXOLE

REACTIONS (3)
  - Stoma site erythema [Recovered/Resolved]
  - Stoma site pain [Unknown]
  - Nephrolithiasis [Unknown]

NARRATIVE: CASE EVENT DATE: 2019
